FAERS Safety Report 5447308-9 (Version None)
Quarter: 2007Q3

REPORT INFORMATION
  Report Type: 
  Country: None (occurrence: None)
  Receive Date: 20070910
  Receipt Date: 20070829
  Transmission Date: 20080115
  Serious: Yes (Hospitalization)
  Sender: FDA-Public Use
  Company Number: JP-ROCHE-501605

PATIENT
  Age: 55 Year
  Sex: Male

DRUGS (13)
  1. DENOSINE IV [Suspect]
     Indication: CYTOMEGALOVIRUS VIRAEMIA
     Dosage: FORM REPORTED AS INFUSION.
     Route: 041
     Dates: start: 20070507, end: 20070511
  2. DENOSINE IV [Suspect]
     Route: 041
     Dates: start: 20070513, end: 20070513
  3. DENOSINE IV [Suspect]
     Route: 041
     Dates: start: 20070514, end: 20070514
  4. ARICEPT [Suspect]
     Indication: DIARRHOEA
     Route: 048
     Dates: start: 20070508, end: 20070514
  5. NEORAL [Suspect]
     Indication: GRAFT VERSUS HOST DISEASE
     Route: 048
     Dates: start: 20070101, end: 20070509
  6. MEROPEN [Suspect]
     Indication: SEPSIS
     Route: 042
     Dates: start: 20070508, end: 20070517
  7. TARGOCID [Suspect]
     Indication: SEPSIS
     Route: 041
     Dates: start: 20070508, end: 20070508
  8. VFEND [Suspect]
     Route: 048
     Dates: start: 20070122, end: 20070509
  9. FRAGMIN [Suspect]
     Indication: DEEP VEIN THROMBOSIS
     Route: 041
     Dates: start: 20070413, end: 20070511
  10. MAXIPIME [Suspect]
     Indication: SEPSIS
     Route: 042
     Dates: start: 20070428, end: 20070507
  11. MORPHINE HYDROCHLORIDE [Suspect]
     Indication: SEPSIS
     Route: 041
     Dates: start: 20070509, end: 20070517
  12. DECADRON [Suspect]
     Indication: DRUG USE FOR UNKNOWN INDICATION
     Route: 065
  13. PROGRAF [Suspect]
     Indication: DRUG USE FOR UNKNOWN INDICATION
     Route: 065

REACTIONS (3)
  - DEPRESSED LEVEL OF CONSCIOUSNESS [None]
  - RENAL DISORDER [None]
  - WHITE BLOOD CELL COUNT DECREASED [None]
